FAERS Safety Report 22384232 (Version 1)
Quarter: 2023Q2

REPORT INFORMATION
  Report Type: Spontaneous
  Country: DE (occurrence: DE)
  Receive Date: 20230530
  Receipt Date: 20230530
  Transmission Date: 20230721
  Serious: Yes (Other)
  Sender: FDA-Public Use
  Company Number: DE-BAXTER-2023BAX021816

PATIENT

DRUGS (14)
  1. BORTEZOMIB [Suspect]
     Active Substance: BORTEZOMIB
     Indication: Plasma cell myeloma refractory
     Dosage: FIRST LINE TREATMENT
     Route: 065
     Dates: start: 202112, end: 202212
  2. BORTEZOMIB [Suspect]
     Active Substance: BORTEZOMIB
     Dosage: THIRD LINE TREATMENT, AS PART OF VDT-PACE REGIMEN
     Route: 065
     Dates: start: 20230324, end: 202304
  3. LENALIDOMIDE [Suspect]
     Active Substance: LENALIDOMIDE
     Indication: Plasma cell myeloma refractory
     Dosage: SECOND LINE TREATMENT
     Route: 065
     Dates: start: 202212, end: 202301
  4. DOXORUBICIN [Suspect]
     Active Substance: DOXORUBICIN
     Indication: Plasma cell myeloma refractory
     Dosage: THIRD LINE TREATMENT, AS PART OF VDT-PACE REGIMEN
     Route: 065
     Dates: start: 20230324, end: 202304
  5. DEXAMETHASONE [Suspect]
     Active Substance: DEXAMETHASONE
     Indication: Plasma cell myeloma refractory
     Dosage: FIRST LINE TREATMENT
     Route: 065
     Dates: start: 202112, end: 202212
  6. DEXAMETHASONE [Suspect]
     Active Substance: DEXAMETHASONE
     Dosage: SECOND LINE TREATMENT
     Route: 065
     Dates: start: 202212, end: 202301
  7. DEXAMETHASONE [Suspect]
     Active Substance: DEXAMETHASONE
     Dosage: THIRD LINE TREATMENT, AS PART OF VDT-PACE REGIMEN
     Route: 065
     Dates: start: 20230324, end: 202304
  8. ETOPOSIDE [Suspect]
     Active Substance: ETOPOSIDE
     Indication: Plasma cell myeloma refractory
     Dosage: THIRD LINE TREATMENT, AS PART OF VDT-PACE REGIMEN
     Route: 065
     Dates: start: 20230324, end: 202304
  9. THALIDOMIDE [Suspect]
     Active Substance: THALIDOMIDE
     Indication: Plasma cell myeloma refractory
     Dosage: FIRST LINE TREATMENT
     Route: 065
     Dates: start: 202112, end: 202212
  10. THALIDOMIDE [Suspect]
     Active Substance: THALIDOMIDE
     Dosage: THIRD LINE TREATMENT, AS PART OF VDT-PACE REGIMEN
     Route: 065
     Dates: start: 20230324, end: 202304
  11. CARFILZOMIB [Suspect]
     Active Substance: CARFILZOMIB
     Indication: Plasma cell myeloma refractory
     Dosage: SECOND LINE TREATMENT
     Route: 065
     Dates: start: 202212, end: 202301
  12. CYCLOPHOSPHAMIDE [Suspect]
     Active Substance: CYCLOPHOSPHAMIDE
     Indication: Plasma cell myeloma refractory
     Dosage: THIRD LINE TREATMENT, AS PART OF VDT-PACE REGIMEN
     Route: 065
     Dates: start: 20230324, end: 202304
  13. DARATUMUMAB [Suspect]
     Active Substance: DARATUMUMAB
     Indication: Plasma cell myeloma refractory
     Dosage: FIRST LINE TREATMENT
     Route: 065
     Dates: start: 202112, end: 202212
  14. CISPLATIN [Suspect]
     Active Substance: CISPLATIN
     Indication: Plasma cell myeloma refractory
     Dosage: THIRD LINE TREATMENT, AS PART OF VDT-PACE REGIMEN
     Route: 065
     Dates: start: 20230324, end: 202304

REACTIONS (1)
  - Plasma cell myeloma [Unknown]
